FAERS Safety Report 8429067-0 (Version None)
Quarter: 2012Q2

REPORT INFORMATION
  Report Type: 
  Country: None (occurrence: None)
  Receive Date: 20120612
  Receipt Date: 20120531
  Transmission Date: 20120825
  Serious: Yes (Other)
  Sender: FDA-Public Use
  Company Number: ZA-JNJFOC-20120601693

PATIENT
  Age: 58 Year
  Sex: Female

DRUGS (3)
  1. INFLIXIMAB, RECOMBINANT [Suspect]
     Indication: CROHN'S DISEASE
     Route: 042
     Dates: start: 20120525
  2. SOLU-CORTEF [Concomitant]
     Indication: PREMEDICATION
     Route: 065
  3. DESLORATADINE [Concomitant]
     Indication: PREMEDICATION
     Route: 065

REACTIONS (8)
  - SYNCOPE [None]
  - FLUSHING [None]
  - BODY TEMPERATURE INCREASED [None]
  - BLOOD PRESSURE DECREASED [None]
  - INFUSION RELATED REACTION [None]
  - HYPERHIDROSIS [None]
  - DYSPNOEA [None]
  - TREMOR [None]
